FAERS Safety Report 7827963-6 (Version None)
Quarter: 2011Q4

REPORT INFORMATION
  Report Type: 
  Country: None (occurrence: None)
  Receive Date: 20111020
  Receipt Date: 20111010
  Transmission Date: 20120403
  Serious: Yes (Death, Hospitalization)
  Sender: FDA-Public Use
  Company Number: DE-ACTELION-A-CH2011-53496

PATIENT
  Sex: Male
  Weight: 60 kg

DRUGS (10)
  1. TRACLEER [Suspect]
     Indication: PULMONARY ARTERIAL HYPERTENSION
     Dosage: UNK , UNK
     Route: 048
     Dates: start: 20081001
  2. CYCLOPHOSPHAMIDE [Concomitant]
  3. ACETYLCYSTEINE [Concomitant]
  4. BISOPROLOL FUMARATE [Concomitant]
  5. ASPIRIN [Concomitant]
  6. GABAPENTIN [Concomitant]
  7. VITAMIN D [Concomitant]
  8. PREDNISONE [Concomitant]
  9. TAMSULOSIN HCL [Concomitant]
  10. ACYCLOVIR [Concomitant]

REACTIONS (6)
  - PNEUMONIA [None]
  - HERPES ZOSTER [None]
  - LUNG INFILTRATION [None]
  - RESPIRATORY FAILURE [None]
  - PULMONARY OEDEMA [None]
  - POST HERPETIC NEURALGIA [None]
